FAERS Safety Report 16647942 (Version 1)
Quarter: 2019Q3

REPORT INFORMATION
  Report Type: Report from Study
  Country: ES (occurrence: ES)
  Receive Date: 20190730
  Receipt Date: 20190730
  Transmission Date: 20191004
  Serious: Yes (Other)
  Sender: FDA-Public Use
  Company Number: ES-MYLANLABS-2019M1070908

PATIENT

DRUGS (3)
  1. PACLITAXEL. [Suspect]
     Active Substance: PACLITAXEL
     Indication: BREAST CANCER METASTATIC
     Dosage: FORM STRENGTH: 6 MG/ML
     Route: 042
     Dates: start: 20170224, end: 20170818
  2. BEVACIZUMAB. [Suspect]
     Active Substance: BEVACIZUMAB
     Indication: BREAST CANCER METASTATIC
     Dosage: FORM STRENGTH: 25 MG/ML
     Route: 042
     Dates: start: 20180226
  3. BEVACIZUMAB. [Suspect]
     Active Substance: BEVACIZUMAB
     Dosage: FORM STRENGTH: 25 MG/ML
     Route: 042
     Dates: start: 20170224

REACTIONS (28)
  - Dental restoration failure [Not Recovered/Not Resolved]
  - Laryngitis [Recovered/Resolved]
  - Erythema [Recovered/Resolved]
  - Lacrimation increased [Recovering/Resolving]
  - Asthenia [Recovered/Resolved]
  - Nail disorder [Recovered/Resolved]
  - Nasal dryness [Recovered/Resolved]
  - Chest discomfort [Recovered/Resolved]
  - Stomatitis [Not Recovered/Not Resolved]
  - Alopecia [Recovered/Resolved]
  - Abdominal pain upper [Recovered/Resolved]
  - Abdominal pain [Recovered/Resolved]
  - Cellulitis [Recovered/Resolved]
  - Nausea [Recovered/Resolved]
  - Epistaxis [Recovered/Resolved]
  - Paronychia [Recovered/Resolved]
  - Skin hyperpigmentation [Recovered/Resolved]
  - Palmar-plantar erythrodysaesthesia syndrome [Recovered/Resolved]
  - Toothache [Recovered/Resolved]
  - Neck pain [Not Recovered/Not Resolved]
  - Tendonitis [Recovered/Resolved]
  - Tooth fracture [Not Recovered/Not Resolved]
  - Hypertension [Recovered/Resolved]
  - Neuropathy peripheral [Recovered/Resolved]
  - Myalgia [Not Recovered/Not Resolved]
  - Dyspnoea [Recovered/Resolved]
  - Diarrhoea [Recovered/Resolved]
  - Vomiting [Recovered/Resolved]

NARRATIVE: CASE EVENT DATE: 20170224
